FAERS Safety Report 8872600 (Version 2)
Quarter: 2012Q4

REPORT INFORMATION
  Report Type: 
  Country: JP (occurrence: JP)
  Receive Date: 20121029
  Receipt Date: 20121218
  Transmission Date: 20130627
  Serious: Yes (Other)
  Sender: FDA-Public Use
  Company Number: JP-UCBSA-069539

PATIENT
  Age: 13 Year
  Sex: Male

DRUGS (2)
  1. E KEPPRA [Suspect]
     Indication: EPILEPSY
     Route: 048
  2. RIVOTRIL [Concomitant]
     Dosage: DAILY DOSE: 0.5 MG
     Route: 048

REACTIONS (1)
  - Aspartate aminotransferase increased [Recovered/Resolved]
